FAERS Safety Report 7608268 (Version 6)
Quarter: 2013Q2

REPORT INFORMATION
  Report Type: Spontaneous
  Country: US (occurrence: US)
  Receive Date: 20100927
  Receipt Date: 20130417
  Transmission Date: 20140414
  Serious: Yes (Other)
  Sender: FDA-Public Use
  Company Number: US-ASTRAZENECA-2010SE24928

PATIENT
  Age: 75 Year
  Sex: Female
  Weight: 45.4 kg

DRUGS (8)
  1. ARIMIDEX [Suspect]
     Indication: BREAST CANCER
     Route: 048
     Dates: start: 200710, end: 201210
  2. ATENOLOL [Suspect]
     Route: 048
  3. NEXIUM [Suspect]
     Route: 048
  4. CRESTOR [Suspect]
     Indication: BLOOD CHOLESTEROL INCREASED
     Route: 048
     Dates: start: 201005
  5. RECLAST [Concomitant]
     Indication: BONE DISORDER
     Route: 042
  6. FISH OIL [Concomitant]
     Indication: BLOOD CHOLESTEROL ABNORMAL
  7. CALCIUM [Concomitant]
  8. VIT C [Concomitant]

REACTIONS (12)
  - Aneurysm [Unknown]
  - Fall [Unknown]
  - Lower limb fracture [Unknown]
  - Hair disorder [Unknown]
  - Limb discomfort [Not Recovered/Not Resolved]
  - Restless legs syndrome [Not Recovered/Not Resolved]
  - Abdominal distension [Unknown]
  - Dry skin [Unknown]
  - Flatulence [Unknown]
  - Irritability [Unknown]
  - Nausea [Recovered/Resolved]
  - Asthenia [Recovered/Resolved]
